FAERS Safety Report 25734780 (Version 1)
Quarter: 2025Q3

REPORT INFORMATION
  Report Type: Other
  Country: JP (occurrence: JP)
  Receive Date: 20250828
  Receipt Date: 20250828
  Transmission Date: 20251020
  Serious: Yes (Death, Life-Threatening, Hospitalization)
  Sender: BRECKENRIDGE PHARMACEUTICAL, INC.
  Company Number: JP-Breckenridge Pharmaceutical, Inc.-2183382

PATIENT
  Age: 86 Year
  Sex: Female

DRUGS (2)
  1. BENDAMUSTINE [Suspect]
     Active Substance: BENDAMUSTINE
     Indication: B-cell lymphoma
  2. RITUXIMAB [Concomitant]
     Active Substance: RITUXIMAB

REACTIONS (4)
  - Acute febrile neutrophilic dermatosis [Fatal]
  - Brain abscess [Fatal]
  - Pancytopenia [Not Recovered/Not Resolved]
  - Myelodysplastic syndrome [Not Recovered/Not Resolved]
